FAERS Safety Report 10285832 (Version 2)
Quarter: 2014Q3

REPORT INFORMATION
  Report Type: Spontaneous
  Country: US (occurrence: US)
  Receive Date: 20140709
  Receipt Date: 20140724
  Transmission Date: 20150326
  Serious: Yes (Hospitalization, Other)
  Sender: FDA-Public Use
  Company Number: US-AMGEN INC.-USASP2014050481

PATIENT
  Age: 60 Year
  Sex: Female
  Weight: 138.78 kg

DRUGS (2)
  1. METHOTREXATE [Concomitant]
     Active Substance: METHOTREXATE
     Indication: PSORIATIC ARTHROPATHY
     Dosage: 8-25 MG, QWK
     Route: 048
     Dates: start: 201209, end: 20140104
  2. ENBREL [Suspect]
     Active Substance: ETANERCEPT
     Indication: PSORIATIC ARTHROPATHY
     Dosage: 50 MG, QWK
     Route: 058
     Dates: start: 20130101, end: 20140108

REACTIONS (7)
  - Obesity [Unknown]
  - Drug effect incomplete [Unknown]
  - Breast cancer [Unknown]
  - Back pain [Not Recovered/Not Resolved]
  - Surgery [Unknown]
  - Arthralgia [Not Recovered/Not Resolved]
  - Musculoskeletal pain [Not Recovered/Not Resolved]

NARRATIVE: CASE EVENT DATE: 2014
